FAERS Safety Report 15843800 (Version 5)
Quarter: 2019Q1

REPORT INFORMATION
  Report Type: Report from Study
  Country: AU (occurrence: AU)
  Receive Date: 20190118
  Receipt Date: 20190204
  Transmission Date: 20190417
  Serious: Yes (Hospitalization)
  Sender: FDA-Public Use
  Company Number: AU-EISAI MEDICAL RESEARCH-EC-2018-047793

PATIENT
  Age: 65 Year
  Sex: Female
  Weight: 86.8 kg

DRUGS (22)
  1. LIPITOR [Concomitant]
     Active Substance: ATORVASTATIN CALCIUM
     Dates: start: 201206
  2. OXYCODONE [Concomitant]
     Active Substance: OXYCODONE
     Dates: start: 20181108
  3. CEFTRIAXONE. [Concomitant]
     Active Substance: CEFTRIAXONE
     Dates: start: 20181108, end: 20181108
  4. TELMISARTAN. [Concomitant]
     Active Substance: TELMISARTAN
     Dates: start: 200606
  5. HYDROCHLOROTHIAZIDE. [Concomitant]
     Active Substance: HYDROCHLOROTHIAZIDE
     Dates: start: 200606
  6. VITAMIN D [Concomitant]
     Active Substance: CHOLECALCIFEROL
     Dates: start: 201606
  7. LENVATINIB [Suspect]
     Active Substance: LENVATINIB
     Indication: ENDOMETRIAL CANCER
     Route: 048
     Dates: start: 20181018, end: 20181107
  8. TARGIN [Concomitant]
     Active Substance: NALOXONE HYDROCHLORIDE\OXYCODONE HYDROCHLORIDE
     Dates: start: 20181108
  9. LENVATINIB [Suspect]
     Active Substance: LENVATINIB
     Dosage: ALSO REPORTED AS LOWER DOSE AS PER PROTOCOL
     Route: 048
     Dates: start: 20190111
  10. MK-3475 [Suspect]
     Active Substance: PEMBROLIZUMAB
     Route: 041
     Dates: start: 20181109, end: 20181109
  11. METOPROLOL. [Concomitant]
     Active Substance: METOPROLOL
     Dates: start: 20181019
  12. LENVATINIB [Suspect]
     Active Substance: LENVATINIB
     Route: 048
     Dates: start: 20181109, end: 20190108
  13. PANTOPRAZOLE [Concomitant]
     Active Substance: PANTOPRAZOLE
     Dates: start: 201406
  14. CEPHALEXIN. [Concomitant]
     Active Substance: CEPHALEXIN
     Dates: start: 20181109, end: 20181114
  15. MK-3475 [Suspect]
     Active Substance: PEMBROLIZUMAB
     Route: 041
     Dates: start: 20181129
  16. ACETAMINOPHEN. [Concomitant]
     Active Substance: ACETAMINOPHEN
     Dates: start: 20181101
  17. MK-3475 [Suspect]
     Active Substance: PEMBROLIZUMAB
     Indication: ENDOMETRIAL CANCER
     Route: 041
     Dates: start: 20181018, end: 20181018
  18. ESCITALOPRAM [Concomitant]
     Active Substance: ESCITALOPRAM OXALATE
     Dates: start: 201806
  19. IRON (UNSPECIFIED) [Concomitant]
     Active Substance: IRON
     Dates: start: 20181020
  20. METOCLOPRAMIDE. [Concomitant]
     Active Substance: METOCLOPRAMIDE
     Dates: start: 20181108
  21. SODIUM CHLORIDE. [Concomitant]
     Active Substance: SODIUM CHLORIDE
     Dates: start: 20181108, end: 20181109
  22. ONDANSETRON [Concomitant]
     Active Substance: ONDANSETRON
     Dates: start: 20181108, end: 20181108

REACTIONS (2)
  - Decreased appetite [Recovering/Resolving]
  - Gastroenteritis [Recovered/Resolved]

NARRATIVE: CASE EVENT DATE: 20181108
